FAERS Safety Report 20963024 (Version 2)
Quarter: 2022Q3

REPORT INFORMATION
  Report Type: Spontaneous
  Country: US (occurrence: None)
  Receive Date: 20220615
  Receipt Date: 20220704
  Transmission Date: 20221027
  Serious: Yes (Other)
  Sender: FDA-Public Use
  Company Number: 2022A217992

PATIENT
  Sex: Male
  Weight: 99.8 kg

DRUGS (5)
  1. SYMBICORT [Suspect]
     Active Substance: BUDESONIDE\FORMOTEROL FUMARATE DIHYDRATE
     Indication: Asthma
     Dosage: 160/4.5 UG 2 PUFFS TWO TIMES A DAY
     Route: 055
  2. PROPOFOL [Suspect]
     Active Substance: PROPOFOL
     Dosage: UNKNOWN
     Route: 042
  3. ALBUTEROL [Concomitant]
     Active Substance: ALBUTEROL
     Dosage: TWICE A DAY IN THE MORNING AND IN THE EVENING
  4. SPIRIVA [Concomitant]
     Active Substance: TIOTROPIUM BROMIDE MONOHYDRATE
     Dosage: ONCE A DAY FOR THE NEXT 2 WEEKS
  5. VENTOLIN NEBULISER [Concomitant]
     Dosage: FOR 5 DAYS 2-3 TIMES A DAY

REACTIONS (7)
  - Dyspnoea [Recovered/Resolved]
  - Post procedural discomfort [Recovered/Resolved]
  - Type IV hypersensitivity reaction [Recovered/Resolved]
  - Allergic reaction to excipient [Unknown]
  - Illness [Recovered/Resolved]
  - Chest discomfort [Recovered/Resolved]
  - Expired device used [Recovered/Resolved]
